FAERS Safety Report 7057093-5 (Version None)
Quarter: 2010Q4

REPORT INFORMATION
  Report Type: 
  Country: None (occurrence: None)
  Receive Date: 20101022
  Receipt Date: 20101005
  Transmission Date: 20110411
  Serious: Yes (Other)
  Sender: FDA-Public Use
  Company Number: US-BAYER-201037649NA

PATIENT
  Age: 16 Year
  Sex: Female
  Weight: 54 kg

DRUGS (2)
  1. YAZ [Suspect]
     Indication: ABDOMINAL PAIN
     Route: 048
     Dates: start: 20061001, end: 20070101
  2. YAZ [Suspect]
     Route: 048
     Dates: start: 20090101, end: 20090501

REACTIONS (5)
  - ABDOMINAL PAIN [None]
  - ANXIETY [None]
  - DEPRESSED MOOD [None]
  - GALLBLADDER DISORDER [None]
  - NAUSEA [None]
